FAERS Safety Report 21046367 (Version 1)
Quarter: 2022Q3

REPORT INFORMATION
  Report Type: Spontaneous
  Country: US (occurrence: US)
  Receive Date: 20220706
  Receipt Date: 20220706
  Transmission Date: 20221026
  Serious: No
  Sender: FDA-Public Use
  Company Number: US-Ipsen Biopharmaceuticals, Inc.-2022-18330

PATIENT
  Age: 61 Year
  Sex: Female

DRUGS (7)
  1. DYSPORT [Suspect]
     Active Substance: ABOBOTULINUMTOXINA
     Indication: Skin wrinkling
     Dosage: DOSE NOT REPORTED
     Route: 065
     Dates: start: 20220520, end: 20220520
  2. DYSPORT [Suspect]
     Active Substance: ABOBOTULINUMTOXINA
     Indication: Skin wrinkling
  3. DYSPORT [Suspect]
     Active Substance: ABOBOTULINUMTOXINA
     Indication: Skin wrinkling
  4. DYSPORT [Suspect]
     Active Substance: ABOBOTULINUMTOXINA
     Indication: Off label use
  5. HYALURONIC ACID\LIDOCAINE [Suspect]
     Active Substance: HYALURONIC ACID\LIDOCAINE
     Indication: Skin wrinkling
     Dates: start: 20220131
  6. HYALURONIC ACID\LIDOCAINE [Suspect]
     Active Substance: HYALURONIC ACID\LIDOCAINE
     Indication: Skin wrinkling
  7. HYALURONIC ACID\LIDOCAINE [Suspect]
     Active Substance: HYALURONIC ACID\LIDOCAINE
     Indication: Skin wrinkling

REACTIONS (6)
  - Swelling face [Unknown]
  - Periorbital swelling [Unknown]
  - Rash [Unknown]
  - Contusion [Unknown]
  - Skin mass [Unknown]
  - Off label use [Unknown]

NARRATIVE: CASE EVENT DATE: 20220102
